FAERS Safety Report 5292067-6 (Version None)
Quarter: 2007Q2

REPORT INFORMATION
  Report Type: 
  Country: None (occurrence: None)
  Receive Date: 20070406
  Receipt Date: 20070406
  Transmission Date: 20071010
  Serious: Yes (Hospitalization)
  Sender: FDA-Public Use
  Company Number: None

PATIENT
  Sex: Female
  Weight: 89.8 kg

DRUGS (12)
  1. DOXORUBICIN HYDROCHLORIDE [Suspect]
     Dosage: 89 MG
  2. G-CSF (FILGRASTIM, AMGEN) [Suspect]
     Dosage: 960 MG
  3. TAXOL [Suspect]
     Dosage: 345 MG
  4. CISPLATIN [Suspect]
     Dosage: 98 MG
  5. ASPIRIN [Concomitant]
  6. ISOSORBIDE MONONITRATE [Concomitant]
  7. K-DUR 10 [Concomitant]
  8. LIPITOR [Concomitant]
  9. LISINOPRIL [Concomitant]
  10. METOPROLOL SUCCINATE [Concomitant]
  11. NITROSTAT [Concomitant]
  12. PLAVIX [Concomitant]

REACTIONS (2)
  - ANGINA PECTORIS [None]
  - DYSPEPSIA [None]
